FAERS Safety Report 8993154 (Version 1)
Quarter: 2013Q1

REPORT INFORMATION
  Report Type: Spontaneous
  Country: FR (occurrence: FR)
  Receive Date: 20130102
  Receipt Date: 20130102
  Transmission Date: 20140127
  Serious: Yes (Hospitalization)
  Sender: FDA-Public Use
  Company Number: FR-TEVA-377352ISR

PATIENT
  Sex: Female

DRUGS (1)
  1. LEELOO [Suspect]
     Indication: CONTRACEPTION
     Dosage: 1 DOSAGE FORMS DAILY; THE PRODUCT WILL BE THEORICALLY REINTRODUCED ON 23-DEC-2012
     Route: 048
     Dates: start: 2010, end: 201212

REACTIONS (4)
  - Colitis ischaemic [Recovering/Resolving]
  - Gastric haemorrhage [Recovering/Resolving]
  - Haematochezia [Recovering/Resolving]
  - Abdominal pain [Recovering/Resolving]
